FAERS Safety Report 4364409-7 (Version None)
Quarter: 2004Q2

REPORT INFORMATION
  Report Type: 
  Country: None (occurrence: None)
  Receive Date: 20040521
  Receipt Date: 20040507
  Transmission Date: 20050107
  Serious: Yes (Other)
  Sender: FDA-Public Use
  Company Number: 2004S1001135

PATIENT
  Age: 56 Year
  Sex: Male

DRUGS (1)
  1. CLOZAPINE [Suspect]
     Indication: SCHIZOPHRENIA
     Dosage: 100MG Q AM AND 800 MG Q PM, ORAL
     Route: 048
     Dates: start: 20040201, end: 20040414

REACTIONS (1)
  - HEPATIC NEOPLASM MALIGNANT [None]
